FAERS Safety Report 11794085 (Version 1)
Quarter: 2015Q4

REPORT INFORMATION
  Report Type: Spontaneous
  Country: US (occurrence: US)
  Receive Date: 20151202
  Receipt Date: 20151202
  Transmission Date: 20160305
  Serious: No
  Sender: FDA-Public Use
  Company Number: US-GLAXOSMITHKLINE-US2015GSK167608

PATIENT
  Age: 55 Year
  Sex: Male

DRUGS (1)
  1. IMITREX SPRAY [Suspect]
     Active Substance: SUMATRIPTAN
     Indication: CLUSTER HEADACHE
     Dosage: 5 MG, UNK
     Dates: start: 201504

REACTIONS (2)
  - Tooth extraction [Unknown]
  - Weight increased [Unknown]

NARRATIVE: CASE EVENT DATE: 20151011
